FAERS Safety Report 10672953 (Version 2)
Quarter: 2015Q1

REPORT INFORMATION
  Report Type: Spontaneous
  Country: NL (occurrence: NL)
  Receive Date: 20141223
  Receipt Date: 20150119
  Transmission Date: 20150720
  Serious: Yes (Death, Hospitalization)
  Sender: FDA-Public Use
  Company Number: NL-ACTELION-A-CH2014-109823

PATIENT
  Age: 60 Year
  Sex: Female

DRUGS (1)
  1. VELETRI [Suspect]
     Active Substance: EPOPROSTENOL
     Indication: PULMONARY ARTERIAL HYPERTENSION
     Dosage: 15000 MCG, UNK
     Route: 042
     Dates: start: 20140303, end: 20141215

REACTIONS (3)
  - General physical health deterioration [Fatal]
  - Apnoea [Fatal]
  - Surgery [Not Recovered/Not Resolved]
